FAERS Safety Report 8795007 (Version 2)
Quarter: 2012Q4

REPORT INFORMATION
  Report Type: 
  Country: US (occurrence: US)
  Receive Date: 20120917
  Receipt Date: 20121030
  Transmission Date: 20130627
  Serious: Yes (Death)
  Sender: FDA-Public Use
  Company Number: US-ROCHE-1124250

PATIENT
  Sex: Male

DRUGS (4)
  1. AVASTIN [Suspect]
     Indication: MALIGNANT RESPIRATORY TRACT NEOPLASM
     Dosage: 1350 mg loading dose
     Route: 042
     Dates: start: 20050526, end: 20050804
  2. AVASTIN [Suspect]
     Dosage: 870 mg maintainace dose
     Route: 065
  3. CARBOPLATIN [Concomitant]
  4. TAXOL [Concomitant]

REACTIONS (4)
  - Malignant neoplasm progression [Fatal]
  - Myalgia [Unknown]
  - Arthralgia [Unknown]
  - Pain in extremity [Unknown]
